FAERS Safety Report 25748651 (Version 1)
Quarter: 2025Q3

REPORT INFORMATION
  Report Type: Spontaneous
  Country: US (occurrence: US)
  Receive Date: 20250902
  Receipt Date: 20250902
  Transmission Date: 20251020
  Serious: Yes (Other)
  Sender: STRIDES
  Company Number: US-STRIDES NORDIC APS-2025SP010988

PATIENT
  Age: 53 Year
  Sex: Male

DRUGS (5)
  1. COLCHICINE [Suspect]
     Active Substance: COLCHICINE
     Indication: Pericarditis
     Route: 065
     Dates: start: 202409
  2. COLCHICINE [Suspect]
     Active Substance: COLCHICINE
     Route: 065
     Dates: start: 202411, end: 2024
  3. PREDNISOLONE [Suspect]
     Active Substance: PREDNISOLONE
     Indication: Pericarditis
     Route: 065
     Dates: start: 202409
  4. CELECOXIB [Suspect]
     Active Substance: CELECOXIB
     Indication: Pericarditis
     Route: 065
     Dates: start: 202409
  5. CELECOXIB [Suspect]
     Active Substance: CELECOXIB
     Route: 065

REACTIONS (2)
  - Pericarditis [Recovered/Resolved]
  - Off label use [Unknown]

NARRATIVE: CASE EVENT DATE: 20241001
